FAERS Safety Report 8317875-6 (Version None)
Quarter: 2012Q2

REPORT INFORMATION
  Report Type: 
  Country: None (occurrence: None)
  Receive Date: 20120427
  Receipt Date: 20120416
  Transmission Date: 20120825
  Serious: Yes (Hospitalization, Other)
  Sender: FDA-Public Use
  Company Number: US-BAYER-2011-069324

PATIENT
  Age: 28 Year
  Sex: Female
  Weight: 78 kg

DRUGS (6)
  1. ASCORBIC ACID [Concomitant]
     Dosage: UNK
     Dates: start: 20000101
  2. MOTRIN [Concomitant]
     Dosage: AS NEEDED
     Dates: start: 20000101
  3. AMOXICILLIN [Concomitant]
     Dosage: UNK
     Dates: start: 20070101
  4. VICODIN [Concomitant]
  5. DROSPIRENONE AND ETHINYL ESTRADIOL [Suspect]
     Indication: CONTRACEPTION
     Dosage: UNK
     Dates: start: 20090601, end: 20090901
  6. DROSPIRENONE AND ETHINYL ESTRADIOL [Suspect]
     Indication: POLYCYSTIC OVARIES

REACTIONS (8)
  - DEEP VEIN THROMBOSIS [None]
  - CHOLELITHIASIS [None]
  - PULMONARY EMBOLISM [None]
  - MYOCARDIAL INFARCTION [None]
  - CEREBROVASCULAR ACCIDENT [None]
  - PAIN [None]
  - GALLBLADDER DISORDER [None]
  - MENTAL DISORDER [None]
